FAERS Safety Report 6820131-6 (Version None)
Quarter: 2010Q3

REPORT INFORMATION
  Report Type: 
  Country: None (occurrence: None)
  Receive Date: 20100707
  Receipt Date: 20100628
  Transmission Date: 20110219
  Serious: Yes (Hospitalization)
  Sender: FDA-Public Use
  Company Number: US-ASTRAZENECA-2010SE30159

PATIENT
  Age: 24 Year
  Sex: Male

DRUGS (8)
  1. SEROQUEL [Suspect]
     Indication: BIPOLAR DISORDER
     Route: 048
  2. SEROQUEL [Suspect]
     Indication: SCHIZOAFFECTIVE DISORDER
     Route: 048
  3. SEROQUEL [Suspect]
     Dosage: 300-450 MG
     Route: 048
     Dates: start: 20080101, end: 20100501
  4. SEROQUEL [Suspect]
     Dosage: 300-450 MG
     Route: 048
     Dates: start: 20080101, end: 20100501
  5. SEROQUEL [Suspect]
     Route: 048
     Dates: start: 20100623
  6. SEROQUEL [Suspect]
     Route: 048
     Dates: start: 20100623
  7. PAXIL ER [Suspect]
     Dates: start: 20100623
  8. ABILIFY [Concomitant]

REACTIONS (4)
  - DEPRESSED LEVEL OF CONSCIOUSNESS [None]
  - SOMNOLENCE [None]
  - SPEECH DISORDER [None]
  - SUICIDAL IDEATION [None]
